FAERS Safety Report 24335355 (Version 1)
Quarter: 2024Q3

REPORT INFORMATION
  Report Type: Spontaneous
  Country: US (occurrence: US)
  Receive Date: 20240918
  Receipt Date: 20240918
  Transmission Date: 20241017
  Serious: No
  Sender: SANOFI AVENTIS
  Company Number: US-SA-2024SA259741

PATIENT
  Sex: Male

DRUGS (17)
  1. DUPIXENT [Suspect]
     Active Substance: DUPILUMAB
     Indication: Asthma
     Dosage: 300 MG, QOW
     Route: 058
     Dates: start: 20230715
  2. EPINEPHRINE [Concomitant]
     Active Substance: EPINEPHRINE
  3. QNASL [Concomitant]
     Active Substance: BECLOMETHASONE DIPROPIONATE
  4. SYMBICORT [Concomitant]
     Active Substance: BUDESONIDE\FORMOTEROL FUMARATE DIHYDRATE
  5. SPIRIVA [Concomitant]
     Active Substance: TIOTROPIUM BROMIDE MONOHYDRATE
  6. SINGULAIR [Concomitant]
     Active Substance: MONTELUKAST SODIUM
  7. SIMVASTATIN [Concomitant]
     Active Substance: SIMVASTATIN
  8. VTAMA [Concomitant]
     Active Substance: TAPINAROF
  9. XYZAL [Concomitant]
     Active Substance: LEVOCETIRIZINE DIHYDROCHLORIDE
  10. CLARITHROMYCIN [Concomitant]
     Active Substance: CLARITHROMYCIN
  11. ALPRAZOLAM [Concomitant]
     Active Substance: ALPRAZOLAM
  12. PREDNISONE [Concomitant]
     Active Substance: PREDNISONE
  13. PREDNISONE [Concomitant]
     Active Substance: PREDNISONE
  14. SPIRIVA [Concomitant]
     Active Substance: TIOTROPIUM BROMIDE MONOHYDRATE
  15. XHANCE [Concomitant]
     Active Substance: FLUTICASONE PROPIONATE
  16. ALPRAZOLAM [Concomitant]
     Active Substance: ALPRAZOLAM
  17. ENSTILAR [Concomitant]
     Active Substance: BETAMETHASONE DIPROPIONATE\CALCIPOTRIENE HYDRATE

REACTIONS (1)
  - Impaired quality of life [Unknown]
